FAERS Safety Report 6393314-X (Version None)
Quarter: 2009Q4

REPORT INFORMATION
  Report Type: 
  Country: None (occurrence: None)
  Receive Date: 20091008
  Receipt Date: 20091008
  Transmission Date: 20100525
  Serious: Yes (Other)
  Sender: FDA-Public Use
  Company Number: PHHO2009US09563

PATIENT
  Sex: Female

DRUGS (1)
  1. ALISKIREN ALI+TAB+HT [Suspect]
     Indication: ESSENTIAL HYPERTENSION
     Dosage: 300 MG, QD
     Route: 048
     Dates: start: 20080722

REACTIONS (3)
  - COLONIC POLYP [None]
  - DIARRHOEA [None]
  - HAEMATOCHEZIA [None]
